FAERS Safety Report 9900026 (Version 1)
Quarter: 2014Q1

REPORT INFORMATION
  Report Type: Spontaneous
  Country: US (occurrence: US)
  Receive Date: 20140214
  Receipt Date: 20140214
  Transmission Date: 20141002
  Serious: No
  Sender: FDA-Public Use
  Company Number: US-VIVUS-2014V1000015

PATIENT
  Sex: Female
  Weight: 137.56 kg

DRUGS (3)
  1. QSYMIA 7.5MG/46MG [Suspect]
     Indication: WEIGHT DECREASED
     Route: 048
     Dates: start: 20131203, end: 20140104
  2. QSYMIA 3.75MG/23MG [Suspect]
     Indication: WEIGHT DECREASED
     Route: 048
     Dates: start: 201311, end: 201312
  3. QSYMIA 3.75MG/23MG [Suspect]
     Route: 048
     Dates: start: 20140109

REACTIONS (6)
  - Pallor [Unknown]
  - Dizziness [Recovering/Resolving]
  - Nausea [Recovering/Resolving]
  - Headache [Recovering/Resolving]
  - Dyspepsia [Recovered/Resolved]
  - Insomnia [Recovered/Resolved]
